FAERS Safety Report 21054934 (Version 1)
Quarter: 2022Q3

REPORT INFORMATION
  Report Type: Spontaneous
  Country: CN (occurrence: CN)
  Receive Date: 20220707
  Receipt Date: 20220707
  Transmission Date: 20221027
  Serious: Yes (Death)
  Sender: FDA-Public Use
  Company Number: CN-SCALL-2022-CN-000190

PATIENT
  Age: 22 Year
  Sex: Male
  Weight: 58.1 kg

DRUGS (3)
  1. RABEPRAZOLE SODIUM [Suspect]
     Active Substance: RABEPRAZOLE SODIUM
     Indication: Gastritis
     Dosage: 20 MG (ONLY ONE DOSE ADMINISTERED)
     Route: 048
  2. ETIMICIN SULFATE [Suspect]
     Active Substance: ETIMICIN SULFATE
     Dosage: 100 MG (ONLY ONE DOSE ADMINISTERED)
     Route: 042
  3. METOCLOPRAMIDE [Suspect]
     Active Substance: METOCLOPRAMIDE
     Dosage: 10 MG (ONLY ONE DOSE ADMINISTERED)
     Route: 042

REACTIONS (2)
  - Eosinophilic myocarditis [Fatal]
  - Drug hypersensitivity [Fatal]
